FAERS Safety Report 9967318 (Version 2)
Quarter: 2014Q1

REPORT INFORMATION
  Report Type: Report from Study
  Country: US (occurrence: US)
  Receive Date: 20140305
  Receipt Date: 20140305
  Transmission Date: 20141002
  Serious: No
  Sender: FDA-Public Use
  Company Number: US-ABBVIE-13P-163-1116779-00

PATIENT
  Age: 70 Year
  Sex: Female

DRUGS (22)
  1. HUMIRA [Suspect]
     Indication: CROHN^S DISEASE
     Dates: start: 20130330
  2. OMEPRAZOLE [Suspect]
     Indication: PRODUCT USED FOR UNKNOWN INDICATION
  3. LASIX [Concomitant]
     Indication: SWELLING
  4. PREDNISONE [Concomitant]
     Indication: PRODUCT USED FOR UNKNOWN INDICATION
  5. BENICAR [Concomitant]
     Indication: HYPERTENSION
  6. CARAFATE [Concomitant]
     Indication: CROHN^S DISEASE
     Dosage: 1 MG/10 ML
  7. VALIFIDE IMMODIUM [Concomitant]
     Indication: CROHN^S DISEASE
  8. VENTOLIN [Concomitant]
     Indication: CHRONIC OBSTRUCTIVE PULMONARY DISEASE
     Route: 055
  9. SPIRIVA [Concomitant]
     Indication: CHRONIC OBSTRUCTIVE PULMONARY DISEASE
     Route: 055
  10. VIT B12 [Concomitant]
     Indication: PRODUCT USED FOR UNKNOWN INDICATION
     Route: 050
  11. BALSALAZIDE [Concomitant]
     Indication: CROHN^S DISEASE
  12. MASTONAN [Concomitant]
     Indication: PRODUCT USED FOR UNKNOWN INDICATION
  13. ASTROVASTALIN [Concomitant]
     Indication: CROHN^S DISEASE
  14. MIRTAZIPENE [Concomitant]
     Indication: INSOMNIA
     Dosage: AT BEDTIME
  15. MIRTAZIPENE [Concomitant]
     Indication: ANXIETY
  16. LOPERIMIDE [Concomitant]
     Indication: DIARRHOEA
  17. FLONASE [Concomitant]
     Indication: NASAL DRYNESS
     Dosage: AT BEDTIME
     Route: 045
  18. KLORCON [Concomitant]
     Indication: PRODUCT USED FOR UNKNOWN INDICATION
  19. CHOLESTEPOL MICONISE [Concomitant]
     Indication: PRODUCT USED FOR UNKNOWN INDICATION
  20. DICLOFENAC [Concomitant]
     Indication: PRODUCT USED FOR UNKNOWN INDICATION
  21. DIPHENALAYTE ATROPINE [Concomitant]
     Indication: PRODUCT USED FOR UNKNOWN INDICATION
  22. SYMBICORT [Concomitant]
     Indication: CHRONIC OBSTRUCTIVE PULMONARY DISEASE

REACTIONS (13)
  - Swelling [Not Recovered/Not Resolved]
  - Vision blurred [Not Recovered/Not Resolved]
  - Sinusitis [Unknown]
  - Ear discomfort [Unknown]
  - Gingival pain [Unknown]
  - Local swelling [Not Recovered/Not Resolved]
  - Local swelling [Not Recovered/Not Resolved]
  - Asthenia [Unknown]
  - Ear discomfort [Not Recovered/Not Resolved]
  - Hypoaesthesia [Not Recovered/Not Resolved]
  - Hypoaesthesia [Not Recovered/Not Resolved]
  - Hypoaesthesia [Not Recovered/Not Resolved]
  - Asthenia [Not Recovered/Not Resolved]
